FAERS Safety Report 6940222-9 (Version None)
Quarter: 2010Q3

REPORT INFORMATION
  Report Type: 
  Country: None (occurrence: None)
  Receive Date: 20100820
  Receipt Date: 20100809
  Transmission Date: 20110219
  Serious: Yes (Life-Threatening, Hospitalization, Other)
  Sender: FDA-Public Use
  Company Number: AUR-APL-2010-01995

PATIENT
  Age: 43 Year
  Sex: Female

DRUGS (2)
  1. SERTRALINE HYDROCHLORIDE [Suspect]
     Indication: DEPRESSION
     Dosage: 100MG - DAILY
  2. INDOMETHACIN [Suspect]
     Indication: MUSCULOSKELETAL PAIN
     Dosage: 75MG - BID

REACTIONS (27)
  - ALANINE AMINOTRANSFERASE INCREASED [None]
  - AMNESIA [None]
  - ANION GAP INCREASED [None]
  - ARTERIOSPASM CORONARY [None]
  - ASPARTATE AMINOTRANSFERASE INCREASED [None]
  - BLOOD GLUCOSE INCREASED [None]
  - BLOOD LACTATE DEHYDROGENASE INCREASED [None]
  - CARDIAC ARREST [None]
  - CHILLS [None]
  - CLONUS [None]
  - COMA [None]
  - CONFUSIONAL STATE [None]
  - DISCOMFORT [None]
  - DRUG INTERACTION [None]
  - EXTENSOR PLANTAR RESPONSE [None]
  - FLUSHING [None]
  - HEADACHE [None]
  - HYPERHIDROSIS [None]
  - METABOLIC ACIDOSIS [None]
  - MUSCLE RIGIDITY [None]
  - MUSCULOSKELETAL PAIN [None]
  - MYDRIASIS [None]
  - MYOCARDIAL INFARCTION [None]
  - RHABDOMYOLYSIS [None]
  - SEROTONIN SYNDROME [None]
  - TREMOR [None]
  - WHITE BLOOD CELL COUNT INCREASED [None]
